FAERS Safety Report 17174108 (Version 32)
Quarter: 2020Q3

REPORT INFORMATION
  Report Type: Report from Study
  Country: JP (occurrence: JP)
  Receive Date: 20191219
  Receipt Date: 20200916
  Transmission Date: 20201102
  Serious: Yes (Hospitalization)
  Sender: FDA-Public Use
  Company Number: JP-ROCHE-2499114

PATIENT
  Age: 71 Year
  Sex: Female
  Weight: 37.2 kg

DRUGS (48)
  1. PEMETREXED. [Suspect]
     Active Substance: PEMETREXED
     Indication: NON-SMALL CELL LUNG CANCER
     Dosage: DOSE OF LAST PEMETREXED ADMINISTERED PRIOR TO AE ONSET 641 MG (500 MG/M2)?DATE OF MOST RECENT DOSE O
     Route: 042
     Dates: start: 20191204
  2. DECADRON [Concomitant]
     Active Substance: DEXAMETHASONE
     Indication: PROPHYLAXIS
     Route: 048
     Dates: start: 20191205, end: 20191207
  3. DEXART [Concomitant]
     Active Substance: DEXAMETHASONE SODIUM PHOSPHATE
     Indication: PROPHYLAXIS
     Dates: start: 20191204, end: 20191204
  4. NOVAMIN (JAPAN) [Concomitant]
     Indication: NAUSEA
     Dates: start: 20191206, end: 20191217
  5. SODIUM CHLORIDE. [Concomitant]
     Active Substance: SODIUM CHLORIDE
     Indication: CYTOKINE RELEASE SYNDROME
     Dates: start: 20191225, end: 20191230
  6. ZOLPIDEM [Concomitant]
     Active Substance: ZOLPIDEM TARTRATE
     Dates: start: 20200126, end: 20200126
  7. AUGMENTIN COMBINATION [Concomitant]
     Active Substance: AMOXICILLIN\CLAVULANATE POTASSIUM
     Dates: start: 20200521
  8. BESOFTEN [Concomitant]
     Active Substance: PENTOSAN POLYSULFATE SODIUM
     Dates: start: 20191227, end: 20200224
  9. CISPLATIN. [Suspect]
     Active Substance: CISPLATIN
     Indication: NON-SMALL CELL LUNG CANCER
     Route: 042
  10. LINZESS [Concomitant]
     Active Substance: LINACLOTIDE
     Indication: CONSTIPATION
     Dates: start: 20191205, end: 20200110
  11. LYRICA [Concomitant]
     Active Substance: PREGABALIN
     Indication: CHEST PAIN
     Dates: start: 20200211, end: 20200217
  12. HEPARIN SODIUM. [Concomitant]
     Active Substance: HEPARIN SODIUM
     Indication: THROMBOSIS
     Dates: start: 20200326, end: 20200406
  13. RIVAROXABAN [Concomitant]
     Active Substance: RIVAROXABAN
     Indication: THROMBOSIS
     Dates: start: 20200406, end: 20200520
  14. TAKECAB [Concomitant]
     Active Substance: VONOPRAZAN FUMARATE
     Indication: CHRONIC GASTRITIS
     Dates: start: 20191210
  15. VITAMEDIN INTRAVENOUS [Concomitant]
     Active Substance: CYANOCOBALAMIN\PYRIDOXINE HYDROCHLORIDE\THIAMINE
     Dates: start: 20191224, end: 20191226
  16. TELEMINSOFT [Concomitant]
     Active Substance: BISACODYL
     Indication: CONSTIPATION
     Dates: start: 20191205, end: 20191205
  17. INTRALIPOS [Concomitant]
     Active Substance: SOYBEAN OIL
     Indication: CYTOKINE RELEASE SYNDROME
     Dates: start: 20191217, end: 20191226
  18. CEFAMEZIN [Concomitant]
     Active Substance: CEFAZOLIN
     Dates: start: 20191226, end: 20191227
  19. ACELIO [Concomitant]
     Active Substance: ACETAMINOPHEN
     Indication: CHEST PAIN
     Dates: start: 20200307, end: 20200314
  20. PIPERACILLIN AND TAZOBACTAM [Concomitant]
     Active Substance: PIPERACILLIN SODIUM\TAZOBACTAM SODIUM
     Indication: BRONCHOPLEURAL FISTULA
     Dates: start: 20200325
  21. ALOXI [Concomitant]
     Active Substance: PALONOSETRON HYDROCHLORIDE
     Indication: PROPHYLAXIS
     Dates: start: 20191204, end: 20191204
  22. DECADRON [Concomitant]
     Active Substance: DEXAMETHASONE
     Route: 048
     Dates: start: 20191205, end: 20191207
  23. DIAZEPAM. [Concomitant]
     Active Substance: DIAZEPAM
     Indication: ANXIETY
     Dates: start: 1999
  24. OMEPRAZOLE. [Concomitant]
     Active Substance: OMEPRAZOLE
     Indication: CHRONIC GASTRITIS
     Dates: start: 2012, end: 20191209
  25. LOXONIN [Concomitant]
     Active Substance: LOXOPROFEN SODIUM
     Indication: CYTOKINE RELEASE SYNDROME
     Dates: start: 20191219, end: 20191226
  26. LOXONIN [Concomitant]
     Active Substance: LOXOPROFEN SODIUM
     Indication: HEADACHE
  27. AUGMENTIN COMBINATION [Concomitant]
     Active Substance: AMOXICILLIN\CLAVULANATE POTASSIUM
     Indication: BRONCHOPLEURAL FISTULA
     Dates: start: 20200423, end: 20200514
  28. MAGMITT [Concomitant]
     Active Substance: MAGNESIUM OXIDE
     Indication: CONSTIPATION
     Dates: start: 20191204
  29. BERIPLAST P COMBI SET [Concomitant]
     Dates: start: 20200527, end: 20200527
  30. SENNA [Concomitant]
     Active Substance: SENNA LEAF\SENNOSIDES\SENNOSIDES A AND B
     Indication: CONSTIPATION
     Dates: start: 20191206, end: 20191214
  31. SULPIRIDE [Concomitant]
     Active Substance: SULPIRIDE
     Indication: CHRONIC GASTRITIS
     Dates: start: 2012
  32. ROSUVASTATIN. [Concomitant]
     Active Substance: ROSUVASTATIN
     Indication: HYPERLIPIDAEMIA
     Dates: start: 201811
  33. CYANOCOBALAMIN. [Concomitant]
     Active Substance: CYANOCOBALAMIN
     Indication: PREMEDICATION
     Dates: start: 20191126, end: 20191126
  34. INTRALIPOS [Concomitant]
     Active Substance: SOYBEAN OIL
     Indication: HYPOALBUMINAEMIA
  35. EMEND [Concomitant]
     Active Substance: APREPITANT
     Indication: PROPHYLAXIS
     Dates: start: 20191204, end: 20191205
  36. MOSAPRIDE [Concomitant]
     Active Substance: MOSAPRIDE
     Indication: CHRONIC GASTRITIS
     Dates: start: 2012
  37. FLUNITRAZEPAM [Concomitant]
     Active Substance: FLUNITRAZEPAM
     Indication: INSOMNIA
     Dates: start: 2009
  38. ISOTONIC SODIUM CHLORIDE SOLUTION [Concomitant]
     Active Substance: SODIUM CHLORIDE
     Dates: start: 20191215, end: 20191230
  39. SODIUM CHLORIDE. [Concomitant]
     Active Substance: SODIUM CHLORIDE
     Indication: HYPONATRAEMIA
  40. TARLIGE [Concomitant]
     Active Substance: MIROGABALIN BESYLATE
     Indication: CHEST PAIN
     Dates: start: 20200218, end: 20200313
  41. ROPION [Concomitant]
     Active Substance: FLURBIPROFEN AXETIL
     Indication: CHEST PAIN
     Dates: start: 20200128, end: 20200307
  42. CEFALEXIN [Concomitant]
     Active Substance: CEPHALEXIN
     Indication: BRONCHOPLEURAL FISTULA
     Dates: start: 20200406, end: 20200423
  43. ATEZOLIZUMAB. [Suspect]
     Active Substance: ATEZOLIZUMAB
     Indication: NON-SMALL CELL LUNG CANCER
     Dosage: DATE OF MOST RECENT DOSE PRIOR TO SAE ONSET: 04/DEC/2019
     Route: 041
     Dates: start: 20191204
  44. SENNA [Concomitant]
     Active Substance: SENNA LEAF\SENNOSIDES\SENNOSIDES A AND B
     Dates: start: 20200126, end: 20200126
  45. FERROUS SULFATE. [Concomitant]
     Active Substance: FERROUS SULFATE
     Dates: start: 20191220, end: 20191226
  46. CEFAZOLIN SODIUM. [Concomitant]
     Active Substance: CEFAZOLIN SODIUM
     Indication: INFECTION
     Dates: start: 20200127, end: 20200128
  47. METOCLOPRAMIDE. [Concomitant]
     Active Substance: METOCLOPRAMIDE
     Indication: CHRONIC GASTRITIS
     Dates: start: 20200205, end: 20200307
  48. CLOPIDOGREL [Concomitant]
     Active Substance: CLOPIDOGREL BISULFATE
     Indication: CEREBRAL INFARCTION
     Dates: start: 20200704

REACTIONS (2)
  - Cytokine release syndrome [Recovering/Resolving]
  - Amylase increased [Recovered/Resolved]

NARRATIVE: CASE EVENT DATE: 20191208
